FAERS Safety Report 7118697-4 (Version None)
Quarter: 2010Q4

REPORT INFORMATION
  Report Type: 
  Country: None (occurrence: None)
  Receive Date: 20101123
  Receipt Date: 20101109
  Transmission Date: 20110411
  Serious: No
  Sender: FDA-Public Use
  Company Number: US-PFIZER INC-2010148203

PATIENT
  Sex: Male

DRUGS (1)
  1. TORISEL [Suspect]

REACTIONS (2)
  - DISEASE PROGRESSION [None]
  - RENAL CELL CARCINOMA [None]
